FAERS Safety Report 7333645-X (Version None)
Quarter: 2011Q1

REPORT INFORMATION
  Report Type: 
  Country: None (occurrence: None)
  Receive Date: 20110306
  Receipt Date: 20110222
  Transmission Date: 20110831
  Serious: Yes (Hospitalization, Other)
  Sender: FDA-Public Use
  Company Number: US-ELI_LILLY_AND_COMPANY-US201006004760

PATIENT
  Sex: Female

DRUGS (6)
  1. FORTEO [Suspect]
     Dosage: 20 UG, DAILY (1/D)
  2. ARIXTRA [Concomitant]
  3. BACLOFEN [Concomitant]
  4. OXYCONTIN [Concomitant]
  5. FORTEO [Suspect]
     Indication: OSTEOPOROSIS
     Dosage: 20 UG, DAILY (1/D)
     Dates: start: 20091001
  6. FORTEO [Suspect]
     Dosage: 20 UG, DAILY (1/D)

REACTIONS (6)
  - FEMUR FRACTURE [None]
  - BONE DENSITY DECREASED [None]
  - HIP FRACTURE [None]
  - INJECTION SITE EXTRAVASATION [None]
  - DRUG INEFFECTIVE [None]
  - FALL [None]
